FAERS Safety Report 5067567-4 (Version None)
Quarter: 2006Q3

REPORT INFORMATION
  Report Type: 
  Country: None (occurrence: None)
  Receive Date: 20060717
  Receipt Date: 20060206
  Transmission Date: 20061208
  Serious: Yes (Hospitalization)
  Sender: FDA-Public Use
  Company Number: K200600163

PATIENT
  Age: 55 Year
  Sex: Female
  Weight: 83.9 kg

DRUGS (2)
  1. LEVOXYL [Suspect]
     Indication: HYPOTHYROIDISM
     Dosage: 50 MCG, SINGLE, ORAL
     Route: 048
     Dates: start: 20011101, end: 20011101
  2. CLARITIN [Concomitant]

REACTIONS (2)
  - FLUSHING [None]
  - TACHYCARDIA [None]
